FAERS Safety Report 18607043 (Version 1)
Quarter: 2020Q4

REPORT INFORMATION
  Report Type: Spontaneous
  Country: US (occurrence: US)
  Receive Date: 20201212
  Receipt Date: 20201212
  Transmission Date: 20210114
  Serious: No
  Sender: FDA-Public Use
  Company Number: US-LUPIN PHARMACEUTICALS INC.-2020-09494

PATIENT
  Age: 65 Year
  Sex: Male
  Weight: 96.6 kg

DRUGS (1)
  1. ALBUTEROL SULFATE INHALATION AEROSOL, 90 MCG/ACTUATION [Suspect]
     Active Substance: ALBUTEROL SULFATE
     Indication: PRODUCT USED FOR UNKNOWN INDICATION
     Dosage: UNK (2 PUFFS EVERY 4-6 HOURS)
     Dates: start: 20201105, end: 20201105

REACTIONS (3)
  - Device delivery system issue [Unknown]
  - Drug ineffective [Unknown]
  - Device malfunction [Unknown]

NARRATIVE: CASE EVENT DATE: 20201105
